FAERS Safety Report 14168995 (Version 4)
Quarter: 2018Q1

REPORT INFORMATION
  Report Type: Spontaneous
  Country: US (occurrence: US)
  Receive Date: 20171108
  Receipt Date: 20180110
  Transmission Date: 20180508
  Serious: No
  Sender: FDA-Public Use
  Company Number: US-PFIZER INC-2017477300

PATIENT
  Age: 60 Year
  Sex: Female

DRUGS (2)
  1. KERYDIN [Suspect]
     Active Substance: TAVABOROLE
     Dosage: UNK, DAILY
     Route: 061
     Dates: start: 20171001, end: 20171001
  2. KERYDIN [Suspect]
     Active Substance: TAVABOROLE
     Indication: DERMATOPHYTOSIS OF NAIL
     Dosage: UNK

REACTIONS (2)
  - Skin irritation [Recovered/Resolved]
  - Burning sensation [Unknown]

NARRATIVE: CASE EVENT DATE: 201612
